FAERS Safety Report 19857386 (Version 2)
Quarter: 2021Q4

REPORT INFORMATION
  Report Type: Spontaneous
  Country: AU (occurrence: AU)
  Receive Date: 20210921
  Receipt Date: 20211006
  Transmission Date: 20220303
  Serious: No
  Sender: FDA-Public Use
  Company Number: NVSC2021AU210552

PATIENT
  Age: 64 Year
  Sex: Female
  Weight: 102 kg

DRUGS (3)
  1. COSENTYX [Suspect]
     Active Substance: SECUKINUMAB
     Indication: Psoriasis
     Dosage: 6 DF, Q2W
     Route: 065
     Dates: start: 202107
  2. COSENTYX [Suspect]
     Active Substance: SECUKINUMAB
     Dosage: 300 MG, Q4W
     Route: 065
  3. COSENTYX [Suspect]
     Active Substance: SECUKINUMAB
     Dosage: 300 MG, BIW
     Route: 065
     Dates: start: 20211005

REACTIONS (3)
  - Psoriasis [Not Recovered/Not Resolved]
  - Skin lesion [Unknown]
  - Off label use [Unknown]

NARRATIVE: CASE EVENT DATE: 20211005
